FAERS Safety Report 17537413 (Version 3)
Quarter: 2020Q2

REPORT INFORMATION
  Report Type: Report from Study
  Country: None (occurrence: US)
  Receive Date: 20200313
  Receipt Date: 20200605
  Transmission Date: 20200713
  Serious: Yes (Hospitalization)
  Sender: FDA-Public Use
  Company Number: US-INSMED, INC.-US-INS-19-03904

PATIENT
  Age: 62 Year
  Sex: Female

DRUGS (2)
  1. ARIKAYCE [Suspect]
     Active Substance: AMIKACIN
     Indication: MYCOBACTERIUM AVIUM COMPLEX INFECTION
     Route: 055
     Dates: start: 20191209, end: 202004
  2. LAMIRA NEBULIZER SYSTEM [Suspect]
     Active Substance: DEVICE

REACTIONS (12)
  - Sputum increased [Unknown]
  - Bronchospasm [Unknown]
  - Dizziness [Unknown]
  - Nausea [Unknown]
  - Throat irritation [Unknown]
  - Dysgeusia [Unknown]
  - Headache [Unknown]
  - Hospitalisation [Unknown]
  - Malaise [Unknown]
  - Diarrhoea [Unknown]
  - Cough [Unknown]
  - Dyspnoea [Unknown]

NARRATIVE: CASE EVENT DATE: 201912
